FAERS Safety Report 14278568 (Version 3)
Quarter: 2018Q1

REPORT INFORMATION
  Report Type: Spontaneous
  Country: GB (occurrence: GB)
  Receive Date: 20171211
  Receipt Date: 20180205
  Transmission Date: 20180508
  Serious: Yes (Other)
  Sender: FDA-Public Use
  Company Number: GB-OTSUKA-2017_018987

PATIENT
  Sex: Female

DRUGS (3)
  1. ARIPIPRAZOLE. [Suspect]
     Active Substance: ARIPIPRAZOLE
     Dosage: UNK
     Route: 065
     Dates: start: 2012
  2. ARIPIPRAZOLE. [Suspect]
     Active Substance: ARIPIPRAZOLE
     Indication: SCHIZOAFFECTIVE DISORDER
     Dosage: 10 MG, UNK (10 MG DURING FIRST 6 MONTHS OF PREGNANCY 20 MG DURING THE LAST 3 MONTHS OF HER PREGNANCY
     Route: 065
     Dates: start: 2012
  3. ARIPIPRAZOLE. [Suspect]
     Active Substance: ARIPIPRAZOLE
     Dosage: 20 MG, UNK (10 MG DURING FIRST 6 MONTHS OF PREGNANCY 20 MG DURING THE LAST 3 MONTHS OF HER PREGNANCY
     Route: 065
     Dates: start: 2012

REACTIONS (6)
  - Hypersexuality [Unknown]
  - Exposure during pregnancy [Unknown]
  - Product use issue [Unknown]
  - Maternal exposure during pregnancy [Unknown]
  - Thrombosis [Unknown]
  - Live birth [Unknown]
